FAERS Safety Report 9346732 (Version 1)
Quarter: 2013Q2

REPORT INFORMATION
  Report Type: Other
  Country: IT (occurrence: IT)
  Receive Date: 20130613
  Receipt Date: 20130613
  Transmission Date: 20140414
  Serious: Yes (Hospitalization)
  Sender: FDA-Public Use
  Company Number: IT-WATSON-2013-10846

PATIENT
  Age: 68 Year
  Sex: Male
  Weight: 82 kg

DRUGS (4)
  1. CARBOPLATIN (UNKNOWN) [Suspect]
     Indication: PLEURAL MESOTHELIOMA
     Dosage: 398 MG, UNKNOWN
     Dates: start: 20121116, end: 20130125
  2. CARBOPLATIN (UNKNOWN) [Suspect]
     Dosage: 300 MG, UNKNOWN
     Route: 042
  3. ALIMTA [Suspect]
     Indication: PLEURAL MESOTHELIOMA
     Dosage: 1000 MG, UNKNOWN
     Route: 042
     Dates: start: 20121116, end: 20130125
  4. ALIMTA [Suspect]
     Dosage: 800 MG, UNKNOWN
     Route: 042

REACTIONS (6)
  - Polyneuropathy [Not Recovered/Not Resolved]
  - Anaemia [Not Recovered/Not Resolved]
  - Movement disorder [Not Recovered/Not Resolved]
  - Dry skin [Not Recovered/Not Resolved]
  - Hypotonia [Not Recovered/Not Resolved]
  - Hypothermia [Not Recovered/Not Resolved]
